FAERS Safety Report 7510048-6 (Version None)
Quarter: 2011Q2

REPORT INFORMATION
  Report Type: 
  Country: None (occurrence: None)
  Receive Date: 20110527
  Receipt Date: 20110520
  Transmission Date: 20111010
  Serious: Yes (Hospitalization)
  Sender: FDA-Public Use
  Company Number: US-AMGEN-USASP2011026467

PATIENT
  Age: 68 Year
  Sex: Female

DRUGS (7)
  1. VERAPAMIL [Concomitant]
  2. PROLIA [Suspect]
     Indication: OSTEOPOROSIS POSTMENOPAUSAL
     Dosage: 60 MG, Q6MO
     Dates: start: 20101201
  3. CITALOPRAM HYDROBROMIDE [Concomitant]
  4. SYMBICORT [Concomitant]
  5. SPIRIVA [Concomitant]
  6. CLONIDINE [Concomitant]
  7. XANAX [Concomitant]

REACTIONS (5)
  - RENAL FAILURE ACUTE [None]
  - CARDIOMYOPATHY [None]
  - ARTERIOSCLEROSIS CORONARY ARTERY [None]
  - CANDIDIASIS [None]
  - WOUND INFECTION STAPHYLOCOCCAL [None]
